FAERS Safety Report 11138923 (Version 4)
Quarter: 2015Q3

REPORT INFORMATION
  Report Type: Spontaneous
  Country: JP (occurrence: None)
  Receive Date: 20150522
  Receipt Date: 20150715
  Transmission Date: 20151125
  Serious: Yes (Death, Life-Threatening, Other)
  Sender: FDA-Public Use
  Company Number: ADR-2015-00995

PATIENT
  Age: 41 Year
  Sex: Female

DRUGS (1)
  1. GABALON INTRATHECAL [Suspect]
     Active Substance: BACLOFEN
     Dates: start: 20070610, end: 20150404

REACTIONS (5)
  - Sputum increased [None]
  - Respiratory arrest [None]
  - Cardio-respiratory arrest [None]
  - Asphyxia [None]
  - Brain death [None]

NARRATIVE: CASE EVENT DATE: 20150326
